FAERS Safety Report 11261731 (Version 2)
Quarter: 2015Q3

REPORT INFORMATION
  Report Type: Report from Study
  Country: AR (occurrence: AR)
  Receive Date: 20150710
  Receipt Date: 20150814
  Transmission Date: 20151125
  Serious: Yes (Hospitalization, Other)
  Sender: FDA-Public Use
  Company Number: AR-ABBVIE-15P-007-1424294-00

PATIENT
  Age: 58 Year
  Sex: Male

DRUGS (1)
  1. ZEMPLAR [Suspect]
     Active Substance: PARICALCITOL
     Indication: HYPERPARATHYROIDISM SECONDARY
     Route: 042
     Dates: start: 20130901

REACTIONS (2)
  - Postoperative wound infection [Unknown]
  - Cardiac valve vegetation [Recovering/Resolving]

NARRATIVE: CASE EVENT DATE: 201507
